FAERS Safety Report 9071340 (Version 1)
Quarter: 2013Q1

REPORT INFORMATION
  Report Type: Report from Study
  Country: PR (occurrence: PR)
  Receive Date: 20130129
  Receipt Date: 20130129
  Transmission Date: 20140127
  Serious: No
  Sender: FDA-Public Use
  Company Number: PR-ABBOTT-12P-131-0901090-00

PATIENT
  Age: 51 None
  Sex: Female
  Weight: 83.99 kg

DRUGS (6)
  1. HUMIRA 40 MG/0.8 ML PEN [Suspect]
     Indication: RHEUMATOID ARTHRITIS
     Route: 058
     Dates: start: 2010, end: 20120420
  2. HUMIRA 40 MG/0.8 ML PEN [Suspect]
     Dates: start: 20120427
  3. FOLIC ACID [Concomitant]
     Indication: RHEUMATOID ARTHRITIS
     Dosage: 1 TABLET DAILY
     Route: 048
     Dates: start: 2007
  4. METHOTREXATE [Concomitant]
     Indication: RHEUMATOID ARTHRITIS
     Dosage: 7.5 MGS/WEEK-3 TABLETS WEEKLY
     Route: 048
     Dates: start: 2008
  5. PROTONIX [Concomitant]
     Indication: GASTROOESOPHAGEAL REFLUX DISEASE
     Dosage: 1 TABLET BID
     Route: 048
     Dates: start: 2007
  6. NASONEX [Concomitant]
     Indication: SINUSITIS
     Dosage: 1 PUMP EACH NOSTRIL DAILY
     Route: 055
     Dates: start: 2005

REACTIONS (2)
  - Nasopharyngitis [Recovered/Resolved]
  - Pharyngitis [Recovered/Resolved]
